FAERS Safety Report 4990805-0 (Version None)
Quarter: 2006Q1

REPORT INFORMATION
  Report Type: 
  Country: None (occurrence: None)
  Receive Date: 20060315
  Receipt Date: 20050701
  Transmission Date: 20060701
  Serious: Yes (Disabling)
  Sender: FDA-Public Use
  Company Number: USA050699424

PATIENT
  Age: 69 Year
  Sex: Female
  Weight: 49.5 kg

DRUGS (6)
  1. GEMZAR [Suspect]
     Indication: LUNG CANCER METASTATIC
     Dosage: 770 MG/M2, INTRAVENOUS
     Route: 042
  2. CARBOPLATIN [Concomitant]
  3. RADIATION THERAPY (RADIATION THERAPY) [Concomitant]
  4. SYNTHROID [Concomitant]
  5. COUMADIN [Concomitant]
  6. VITAMINS [Concomitant]

REACTIONS (1)
  - NEUROPATHY [None]
